FAERS Safety Report 4662320-5 (Version None)
Quarter: 2005Q2

REPORT INFORMATION
  Report Type: 
  Country: None (occurrence: None)
  Receive Date: 20050512
  Receipt Date: 20050422
  Transmission Date: 20051028
  Serious: Yes (Other)
  Sender: FDA-Public Use
  Company Number: JP_050406333

PATIENT
  Age: 49 Year
  Sex: Female
  Weight: 71 kg

DRUGS (3)
  1. EVISTA [Suspect]
     Indication: OSTEOPOROSIS
     Dosage: 60 MG/1 DAY
     Dates: start: 20050126, end: 20050301
  2. NOLVADEX [Concomitant]
  3. ONEALFA (ALFACALCIDOL) [Concomitant]

REACTIONS (5)
  - CYSTITIS [None]
  - DIARRHOEA [None]
  - POLLAKIURIA [None]
  - THERAPY NON-RESPONDER [None]
  - URINE OUTPUT DECREASED [None]
